FAERS Safety Report 6639875-4 (Version None)
Quarter: 2010Q1

REPORT INFORMATION
  Report Type: 
  Country: None (occurrence: None)
  Receive Date: 20100318
  Receipt Date: 20100308
  Transmission Date: 20100710
  Serious: Yes (Hospitalization)
  Sender: FDA-Public Use
  Company Number: FR-BRISTOL-MYERS SQUIBB COMPANY-15018187

PATIENT
  Age: 79 Year
  Sex: Male

DRUGS (2)
  1. GLUCOPHAGE [Suspect]
     Indication: DIABETES MELLITUS
     Route: 048
     Dates: start: 20090801
  2. NOVONORM [Concomitant]
     Indication: DIABETES MELLITUS
     Dates: start: 20090801

REACTIONS (1)
  - ANAEMIA MACROCYTIC [None]
